FAERS Safety Report 5821496-4 (Version None)
Quarter: 2008Q3

REPORT INFORMATION
  Report Type: 
  Country: None (occurrence: None)
  Receive Date: 20080724
  Receipt Date: 20080722
  Transmission Date: 20090109
  Serious: Yes (Hospitalization)
  Sender: FDA-Public Use
  Company Number: DE-BRISTOL-MYERS SQUIBB COMPANY-14256838

PATIENT
  Age: 50 Year
  Sex: Female
  Weight: 63 kg

DRUGS (5)
  1. CYCLOPHOSPHAMIDE [Suspect]
     Indication: BREAST CANCER
     Dosage: ONCE EVERY TWO WEEKS. STARTED ON 24JUN08
     Route: 042
     Dates: start: 20080624, end: 20080707
  2. TAXOL [Suspect]
     Indication: BREAST CANCER
     Dosage: STARTED ON 13MAY08
     Route: 042
     Dates: start: 20080513, end: 20080609
  3. EPIRUBICIN [Suspect]
     Indication: BREAST CANCER
     Dosage: ONCE EVERY TWO WEEKS. STARTED ON 31MAR08
     Route: 042
     Dates: start: 20080331, end: 20080428
  4. RUDOTEL [Concomitant]
     Route: 048
     Dates: start: 20080707
  5. ARANESP [Concomitant]
     Dosage: 1DOSAGE FORM: 300JE (UNIT NOT CLEAR)
     Route: 058
     Dates: start: 20080401

REACTIONS (2)
  - GENERAL PHYSICAL CONDITION ABNORMAL [None]
  - VOMITING [None]
